FAERS Safety Report 8445468-9 (Version None)
Quarter: 2012Q2

REPORT INFORMATION
  Report Type: 
  Country: None (occurrence: None)
  Receive Date: 20120618
  Receipt Date: 20120613
  Transmission Date: 20120825
  Serious: Yes (Other)
  Sender: FDA-Public Use
  Company Number: PHHY2012ZA050871

PATIENT
  Age: 46 Year
  Sex: Male

DRUGS (1)
  1. HALOPERIDOL [Suspect]
     Indication: SCHIZOPHRENIA
     Dosage: 12.5 MG, QD
     Route: 048
     Dates: start: 20010101, end: 20120614

REACTIONS (3)
  - POLYP [None]
  - WRONG TECHNIQUE IN DRUG USAGE PROCESS [None]
  - SINUS DISORDER [None]
